FAERS Safety Report 11246707 (Version 2)
Quarter: 2015Q3

REPORT INFORMATION
  Report Type: Spontaneous
  Country: US (occurrence: US)
  Receive Date: 20150708
  Receipt Date: 20150722
  Transmission Date: 20151125
  Serious: Yes (Hospitalization, Other)
  Sender: FDA-Public Use
  Company Number: US-009507513-1507USA002901

PATIENT
  Age: 34 Year
  Sex: Female

DRUGS (4)
  1. NOXAFIL [Suspect]
     Active Substance: POSACONAZOLE
     Indication: Q FEVER
     Dosage: 400 MG, TWICE DAILY
     Route: 048
     Dates: end: 20150708
  2. COUMADIN [Concomitant]
     Active Substance: WARFARIN SODIUM
  3. KEPPRA [Concomitant]
     Active Substance: LEVETIRACETAM
  4. CARAFATE [Concomitant]
     Active Substance: SUCRALFATE

REACTIONS (10)
  - General physical health deterioration [Not Recovered/Not Resolved]
  - Fatigue [Not Recovered/Not Resolved]
  - Drug level above therapeutic [Unknown]
  - Drug dispensing error [Unknown]
  - Brain herniation [Not Recovered/Not Resolved]
  - Glioblastoma [Not Recovered/Not Resolved]
  - Drug prescribing error [Unknown]
  - Nausea [Not Recovered/Not Resolved]
  - Vomiting [Not Recovered/Not Resolved]
  - Drug administration error [Unknown]

NARRATIVE: CASE EVENT DATE: 201507
